FAERS Safety Report 4480029-8 (Version None)
Quarter: 2004Q4

REPORT INFORMATION
  Report Type: 
  Country: None (occurrence: None)
  Receive Date: 20041018
  Receipt Date: 20041004
  Transmission Date: 20050328
  Serious: Yes (Hospitalization, Other)
  Sender: FDA-Public Use
  Company Number: 2004S1002576

PATIENT
  Age: 74 Year
  Sex: Male
  Weight: 112.4921 kg

DRUGS (4)
  1. APOKYN [Suspect]
     Indication: PARKINSON'S DISEASE
     Dosage: 0.2ML PRN, SUBCUTANEOUS
     Route: 058
     Dates: start: 20040827
  2. LEVODOPA [Concomitant]
  3. CARBIDOPA AND LEVODOPA [Concomitant]
  4. TRIMEHTOBENZAMIDE [Concomitant]

REACTIONS (4)
  - BLOOD PRESSURE DECREASED [None]
  - BODY TEMPERATURE INCREASED [None]
  - CHOLECYSTECTOMY [None]
  - PANCREATITIS [None]
